FAERS Safety Report 10936175 (Version 2)
Quarter: 2015Q2

REPORT INFORMATION
  Report Type: Spontaneous
  Country: US (occurrence: US)
  Receive Date: 20150320
  Receipt Date: 20150618
  Transmission Date: 20150821
  Serious: Yes (Death, Other)
  Sender: FDA-Public Use
  Company Number: US-ASTRAZENECA-2014SE56415

PATIENT
  Age: 67 Year
  Sex: Male
  Weight: 97.1 kg

DRUGS (11)
  1. CANDESARTAN [Concomitant]
     Active Substance: CANDESARTAN
     Route: 048
  2. ZETIA [Concomitant]
     Active Substance: EZETIMIBE
  3. TAMSULOSIN [Concomitant]
     Active Substance: TAMSULOSIN
     Route: 048
  4. FLOMAX [Concomitant]
     Active Substance: TAMSULOSIN HYDROCHLORIDE
  5. SERTRALINE [Concomitant]
     Active Substance: SERTRALINE HYDROCHLORIDE
     Route: 048
  6. TOPROL XL/METOPROLOL SUCCINATE [Concomitant]
  7. BYETTA [Suspect]
     Active Substance: EXENATIDE
     Indication: TYPE 2 DIABETES MELLITUS
     Dosage: UNK
     Route: 065
     Dates: start: 20070319, end: 20080128
  8. BYETTA [Suspect]
     Active Substance: EXENATIDE
     Indication: TYPE 2 DIABETES MELLITUS
     Route: 065
     Dates: start: 20070319
  9. FAMOTIDINE. [Concomitant]
     Active Substance: FAMOTIDINE
     Route: 048
  10. ALLOPURINOL. [Concomitant]
     Active Substance: ALLOPURINOL
     Route: 048
  11. AMLODIPINE [Concomitant]
     Active Substance: AMLODIPINE BESYLATE
     Route: 048

REACTIONS (5)
  - Pancreatic carcinoma metastatic [Fatal]
  - Pancreatic carcinoma metastatic [Unknown]
  - Prostate cancer [Unknown]
  - Ascites [Unknown]
  - Renal cancer [Unknown]

NARRATIVE: CASE EVENT DATE: 2009
